FAERS Safety Report 24833906 (Version 1)
Quarter: 2025Q1

REPORT INFORMATION
  Report Type: Spontaneous
  Country: IT (occurrence: IT)
  Receive Date: 20250112
  Receipt Date: 20250112
  Transmission Date: 20250409
  Serious: Yes (Other)
  Sender: JOHNSON AND JOHNSON
  Company Number: IT-JNJFOC-20241284451

PATIENT

DRUGS (1)
  1. CARVYKTI [Suspect]
     Active Substance: CILTACABTAGENE AUTOLEUCEL
     Indication: Haematological neoplasm
     Route: 065

REACTIONS (27)
  - Enteropathy-associated T-cell lymphoma [Unknown]
  - Immune-mediated enterocolitis [Unknown]
  - Plasma cell leukaemia [Unknown]
  - Autoimmune enteropathy [Unknown]
  - T-cell lymphoma [Unknown]
  - Peripheral T-cell lymphoma unspecified [Unknown]
  - Acute myeloid leukaemia [Unknown]
  - Plasma cell myeloma [Unknown]
  - Cytokine release syndrome [Unknown]
  - Acute kidney injury [Unknown]
  - Febrile neutropenia [Unknown]
  - Gastroenteritis Escherichia coli [Unknown]
  - White blood cell disorder [Unknown]
  - Gastrointestinal inflammation [Unknown]
  - Gastrointestinal motility disorder [Unknown]
  - Temperature regulation disorder [Unknown]
  - Immune system disorder [Unknown]
  - Bacterial infection [Unknown]
  - Arthropathy [Unknown]
  - Muscle disorder [Unknown]
  - Headache [Unknown]
  - Renal disorder [Unknown]
  - Arthralgia [Unknown]
  - Constipation [Unknown]
  - Diarrhoea [Unknown]
  - Myalgia [Unknown]
  - Pyrexia [Unknown]
